FAERS Safety Report 19002444 (Version 2)
Quarter: 2021Q3

REPORT INFORMATION
  Report Type: Report from Study
  Country: US (occurrence: US)
  Receive Date: 20210312
  Receipt Date: 20210708
  Transmission Date: 20211014
  Serious: Yes (Other)
  Sender: FDA-Public Use
  Company Number: US-BRISTOL-MYERS SQUIBB COMPANY-BMS-2021-020192

PATIENT
  Age: 61 Year
  Sex: Female
  Weight: 106.5 kg

DRUGS (4)
  1. SAXENDA [Concomitant]
     Active Substance: LIRAGLUTIDE
     Indication: WEIGHT DECREASED
     Dosage: UNK
     Route: 065
  2. ABATACEPT [Suspect]
     Active Substance: ABATACEPT
     Indication: RHEUMATOID ARTHRITIS
     Dosage: 125 MILLIGRAM, QWK
     Route: 058
     Dates: start: 2020
  3. ABATACEPT [Suspect]
     Active Substance: ABATACEPT
     Indication: RHEUMATOID ARTHRITIS
     Dosage: UNK
     Route: 042
     Dates: start: 20210609
  4. METHOTREXATE. [Suspect]
     Active Substance: METHOTREXATE
     Indication: RHEUMATOID ARTHRITIS
     Dosage: UNK
     Route: 065

REACTIONS (13)
  - Migraine [Unknown]
  - Hernia [Unknown]
  - Pain [Unknown]
  - Hepatic enzyme increased [Unknown]
  - Cataract [Unknown]
  - Drug ineffective [Unknown]
  - Needle issue [Unknown]
  - Injection site bruising [Unknown]
  - Injection site pain [Unknown]
  - Fibromyalgia [Unknown]
  - Hypertension [Unknown]
  - Urinary tract infection [Unknown]
  - Accidental exposure to product [Unknown]

NARRATIVE: CASE EVENT DATE: 20210219
